FAERS Safety Report 19665051 (Version 4)
Quarter: 2022Q2

REPORT INFORMATION
  Report Type: Report from Study
  Country: US (occurrence: US)
  Receive Date: 20210806
  Receipt Date: 20220420
  Transmission Date: 20220720
  Serious: Yes (Other)
  Sender: FDA-Public Use
  Company Number: US-ABBVIE-21K-163-3844876-00

PATIENT
  Age: 74 Year
  Sex: Female
  Weight: 71.9 kg

DRUGS (20)
  1. VENCLEXTA [Suspect]
     Active Substance: VENETOCLAX
     Indication: Nodular lymphocyte predominant Hodgkin lymphoma
     Route: 048
     Dates: start: 20191125, end: 201911
  2. VENCLEXTA [Suspect]
     Active Substance: VENETOCLAX
     Indication: Waldenstrom^s macroglobulinaemia
     Route: 048
     Dates: start: 20191126, end: 201912
  3. VENCLEXTA [Suspect]
     Active Substance: VENETOCLAX
     Indication: Hodgkin^s disease
     Route: 048
     Dates: start: 201912, end: 201912
  4. VENCLEXTA [Suspect]
     Active Substance: VENETOCLAX
     Route: 048
     Dates: start: 201912, end: 201912
  5. VENCLEXTA [Suspect]
     Active Substance: VENETOCLAX
     Route: 048
     Dates: start: 201912, end: 201912
  6. VENCLEXTA [Suspect]
     Active Substance: VENETOCLAX
     Dosage: 4 TAB BY MOUTH DAILY TAKE WITH MEAL AND 8OZ WATER ORAL
     Route: 048
     Dates: start: 20191204
  7. IBRUTINIB [Suspect]
     Active Substance: IBRUTINIB
     Indication: Product used for unknown indication
     Route: 048
  8. TYLENOL [Concomitant]
     Active Substance: ACETAMINOPHEN
     Indication: Pain
     Route: 048
  9. TYLENOL [Concomitant]
     Active Substance: ACETAMINOPHEN
     Route: 048
  10. VITAMIN C [Concomitant]
     Active Substance: ASCORBIC ACID
     Indication: Product used for unknown indication
     Route: 048
  11. BIOTIN [Concomitant]
     Active Substance: BIOTIN
     Indication: Product used for unknown indication
     Route: 048
  12. LIDOCAINE [Concomitant]
     Active Substance: LIDOCAINE
     Indication: Product used for unknown indication
  13. DIPHENHYDRAMINE [Concomitant]
     Active Substance: DIPHENHYDRAMINE
     Indication: Product used for unknown indication
  14. ALUM [Concomitant]
     Active Substance: POTASSIUM ALUM
     Indication: Product used for unknown indication
  15. MAG [Concomitant]
     Indication: Product used for unknown indication
  16. SIMETHICONE (DIMETHICONE) [Concomitant]
     Active Substance: DIMETHICONE
     Indication: Product used for unknown indication
  17. ALLOPURINOL [Concomitant]
     Active Substance: ALLOPURINOL
     Indication: Product used for unknown indication
     Route: 048
  18. MOMETASONE [Concomitant]
     Active Substance: MOMETASONE
     Indication: Product used for unknown indication
     Route: 061
  19. NAPROXEN [Concomitant]
     Active Substance: NAPROXEN
     Indication: Product used for unknown indication
     Route: 048
  20. PREDNISONE [Concomitant]
     Active Substance: PREDNISONE
     Indication: Product used for unknown indication
     Route: 048

REACTIONS (6)
  - Epiretinal membrane [Unknown]
  - Adhesion [Unknown]
  - Off label use [Unknown]
  - Vision blurred [Unknown]
  - Metamorphopsia [Unknown]
  - Diplopia [Unknown]

NARRATIVE: CASE EVENT DATE: 20191125
